FAERS Safety Report 20164777 (Version 1)
Quarter: 2021Q4

REPORT INFORMATION
  Report Type: Spontaneous
  Country: ES (occurrence: ES)
  Receive Date: 20211209
  Receipt Date: 20211209
  Transmission Date: 20220303
  Serious: Yes (Life-Threatening, Hospitalization)
  Sender: FDA-Public Use
  Company Number: None

PATIENT
  Age: 62 Year
  Sex: Male

DRUGS (6)
  1. TACROLIMUS [Interacting]
     Active Substance: TACROLIMUS
     Indication: Lung transplant
     Route: 048
     Dates: start: 20210821
  2. VALGANCICLOVIR HYDROCHLORIDE [Interacting]
     Active Substance: VALGANCICLOVIR HYDROCHLORIDE
     Indication: Brain abscess
     Route: 048
     Dates: start: 20210825, end: 20210830
  3. AMIKACIN [Interacting]
     Active Substance: AMIKACIN
     Indication: Brain abscess
     Route: 042
     Dates: start: 20210820, end: 20210830
  4. AMBISOME [Interacting]
     Active Substance: AMPHOTERICIN B
     Indication: Brain abscess
     Dosage: 50 MG POWDER FOR DISPERSION FOR INFUSION, 10 VIALS
     Route: 042
     Dates: start: 20210822, end: 20210826
  5. IMIPENEM AND CILASTATIN [Interacting]
     Active Substance: CILASTATIN SODIUM\IMIPENEM
     Indication: Brain abscess
     Dosage: 500 MG/500 MG POWDER FOR SOLUTION FOR EFG INFUSION, 10 VIALS
     Route: 042
     Dates: start: 20210820, end: 20210830
  6. ISAVUCONAZOLE [Interacting]
     Active Substance: ISAVUCONAZOLE
     Indication: Brain abscess
     Route: 048
     Dates: start: 20210826, end: 20210828

REACTIONS (4)
  - Depressed level of consciousness [Recovered/Resolved]
  - Generalised tonic-clonic seizure [Recovered/Resolved]
  - Off label use [Unknown]
  - Drug interaction [Unknown]

NARRATIVE: CASE EVENT DATE: 20210827
